FAERS Safety Report 6771441-2 (Version None)
Quarter: 2010Q2

REPORT INFORMATION
  Report Type: 
  Country: None (occurrence: None)
  Receive Date: 20100616
  Receipt Date: 20081128
  Transmission Date: 20101027
  Serious: Yes (Hospitalization, Other)
  Sender: FDA-Public Use
  Company Number: FR-SANOFI-AVENTIS-D01200808831

PATIENT
  Age: 43 Year
  Sex: Male
  Weight: 77 kg

DRUGS (11)
  1. WARFARIN SODIUM [Suspect]
     Indication: PULMONARY EMBOLISM
     Dosage: DOSE TEXT: PLACEBO SSR126517 + ORAL INR-ADJUSTED WARFARIN
     Dates: start: 20080605, end: 20081210
  2. ENOXAPARIN SODIUM [Suspect]
     Indication: PULMONARY EMBOLISM
     Dosage: UNIT DOSE: 1 MG/KG
     Route: 058
     Dates: start: 20080604, end: 20080612
  3. SPORANOX [Interacting]
  4. XOLAIR [Concomitant]
     Indication: ASTHMA
     Route: 065
     Dates: start: 20070201
  5. HYDROCORTISONE [Concomitant]
     Route: 065
  6. COTAREG ^NOVARTIS^ [Concomitant]
     Route: 065
     Dates: start: 20071219
  7. BRICANYL [Concomitant]
     Indication: ASTHMA
     Route: 065
  8. ATROVENT [Concomitant]
     Indication: ASTHMA
  9. FORADIL [Concomitant]
     Indication: ASTHMA
     Route: 065
  10. ESOMEPRAZOLE [Concomitant]
     Route: 065
  11. LEXOMIL [Concomitant]
     Indication: ANXIETY
     Route: 065
     Dates: start: 20080528

REACTIONS (1)
  - INTERNATIONAL NORMALISED RATIO INCREASED [None]
